FAERS Safety Report 7753041-0 (Version None)
Quarter: 2011Q3

REPORT INFORMATION
  Report Type: 
  Country: None (occurrence: None)
  Receive Date: 20110915
  Receipt Date: 20110906
  Transmission Date: 20111222
  Serious: Yes (Death, Hospitalization, Other)
  Sender: FDA-Public Use
  Company Number: IT-MPIJNJ-2011-02926

PATIENT
  Sex: Male

DRUGS (2)
  1. VELCADE [Suspect]
     Dosage: 1.3 MG/M2, CYCLIC
     Route: 042
     Dates: start: 20090607, end: 20090703
  2. RITUXIMAB [Suspect]
     Dosage: 375 MG/M2, CYCLIC
     Route: 042
     Dates: start: 20090513, end: 20090827

REACTIONS (2)
  - PYREXIA [None]
  - DEATH [None]
